FAERS Safety Report 21832017 (Version 2)
Quarter: 2023Q1

REPORT INFORMATION
  Report Type: Spontaneous
  Country: FR (occurrence: FR)
  Receive Date: 20230106
  Receipt Date: 20230120
  Transmission Date: 20230418
  Serious: Yes (Hospitalization)
  Sender: FDA-Public Use
  Company Number: None

PATIENT
  Age: 34 Year
  Sex: Male

DRUGS (3)
  1. INFLIXIMAB [Suspect]
     Active Substance: INFLIXIMAB
     Indication: Rheumatoid arthritis
     Dosage: UNKNOWN
     Route: 042
     Dates: start: 20220711
  2. METHOTREXATE [Suspect]
     Active Substance: METHOTREXATE
     Indication: Rheumatoid arthritis
     Dosage: UNKNOWN
     Route: 042
     Dates: start: 202203
  3. METHOTREXATE [Suspect]
     Active Substance: METHOTREXATE
     Dosage: UNKNOWN
     Route: 065
     Dates: start: 202112

REACTIONS (1)
  - Psychiatric decompensation [Not Recovered/Not Resolved]

NARRATIVE: CASE EVENT DATE: 20221022
